FAERS Safety Report 5990389-4 (Version None)
Quarter: 2008Q4

REPORT INFORMATION
  Report Type: 
  Country: None (occurrence: None)
  Receive Date: 20081211
  Receipt Date: 20081205
  Transmission Date: 20090506
  Serious: Yes (Other)
  Sender: FDA-Public Use
  Company Number: CA-ASTRAZENECA-2008UW27200

PATIENT
  Age: 92 Year
  Sex: Female

DRUGS (2)
  1. LOSEC MUPS [Suspect]
     Route: 048
  2. COUMADIN [Concomitant]
     Route: 048

REACTIONS (2)
  - ASTHENIA [None]
  - INSOMNIA [None]
